FAERS Safety Report 23257212 (Version 1)
Quarter: 2023Q4

REPORT INFORMATION
  Report Type: Spontaneous
  Country: CH (occurrence: CH)
  Receive Date: 20231204
  Receipt Date: 20231204
  Transmission Date: 20240109
  Serious: Yes (Hospitalization, Other)
  Sender: FDA-Public Use
  Company Number: None

PATIENT

DRUGS (6)
  1. SUMATRIPTAN SUCCINATE [Suspect]
     Active Substance: SUMATRIPTAN SUCCINATE
     Indication: Cluster headache
     Dosage: 12 MG S.C. 1-2 TIMES DAILY, DOSE AS NEEDED
     Route: 058
     Dates: end: 20230918
  2. ZOMIG [Suspect]
     Active Substance: ZOLMITRIPTAN
     Indication: Cluster headache
     Dosage: 5 MG, INTO THE RIGHT NOSTRIL AS NEEDED, USUALLY 2-3 X /WEEK
     Route: 045
     Dates: end: 20230918
  3. VERAPAMIL HYDROCHLORIDE [Concomitant]
     Active Substance: VERAPAMIL HYDROCHLORIDE
     Indication: Cluster headache
     Dosage: 600 MG, BID
     Route: 048
  4. AMITRIPTYLINE [Concomitant]
     Active Substance: AMITRIPTYLINE
     Indication: Depression
     Dosage: 50 MG, QD
     Route: 048
  5. MELATONIN [Concomitant]
     Active Substance: MELATONIN
     Indication: Product used for unknown indication
     Dosage: 4 MG, QD SLENYTO, PRODUCT NOT FOUND IN DATABASE
     Route: 048
  6. KETAMIN [Concomitant]
     Active Substance: KETAMINE
     Indication: Cluster headache
     Dosage: UNK UNK, Q4W; APPROX. 20 MG EVERY 4 WEEKS, LAST APPLICATION ON SEPTEMBER 5TH, 2023 (25MG)
     Route: 042

REACTIONS (2)
  - Acute myocardial infarction [Recovering/Resolving]
  - Arteriospasm coronary [Recovering/Resolving]

NARRATIVE: CASE EVENT DATE: 20230917
